FAERS Safety Report 17494996 (Version 1)
Quarter: 2020Q1

REPORT INFORMATION
  Report Type: Spontaneous
  Country: US (occurrence: US)
  Receive Date: 20200223
  Receipt Date: 20200223
  Transmission Date: 20200409
  Serious: Yes (Hospitalization)
  Sender: FDA-Public Use
  Company Number: None

PATIENT
  Sex: Female
  Weight: 54.9 kg

DRUGS (1)
  1. ARIMIDEX [Suspect]
     Active Substance: ANASTROZOLE

REACTIONS (4)
  - Urinary tract infection [None]
  - Hypotension [None]
  - Cough [None]
  - Chest pain [None]

NARRATIVE: CASE EVENT DATE: 20200205
